FAERS Safety Report 6050166-5 (Version None)
Quarter: 2009Q1

REPORT INFORMATION
  Report Type: 
  Country: None (occurrence: None)
  Receive Date: 20090126
  Receipt Date: 20090120
  Transmission Date: 20090719
  Serious: Yes (Life-Threatening, Disabling)
  Sender: FDA-Public Use
  Company Number: GB-ELI_LILLY_AND_COMPANY-GB200901003129

PATIENT
  Age: 58 Year
  Sex: Male
  Weight: 80 kg

DRUGS (5)
  1. XIGRIS [Suspect]
     Indication: MENINGOCOCCAL SEPSIS
     Dosage: UNK, UNKNOWN
     Route: 042
     Dates: start: 20081214, end: 20081218
  2. CEFTRIAXONE [Concomitant]
     Indication: MENINGOCOCCAL SEPSIS
     Dosage: 4 G, UNKNOWN
     Route: 042
     Dates: start: 20081214, end: 20081220
  3. HYDROCORTISONE [Concomitant]
     Indication: SEPSIS
     Dosage: 240 MG, UNKNOWN
     Route: 042
     Dates: start: 20081214, end: 20081220
  4. NORADRENALINE [Concomitant]
     Indication: HYPOTENSION
     Dosage: 1 MG/KG, UNKNOWN
     Route: 042
     Dates: start: 20081214, end: 20081220
  5. RANITIDINE [Concomitant]
     Indication: PROPHYLAXIS
     Dosage: 50 MG, 3/D
     Route: 042
     Dates: start: 20081214, end: 20081230

REACTIONS (2)
  - PLATELET COUNT DECREASED [None]
  - SUBARACHNOID HAEMORRHAGE [None]
